FAERS Safety Report 5699892-8 (Version None)
Quarter: 2008Q2

REPORT INFORMATION
  Report Type: 
  Country: None (occurrence: None)
  Receive Date: 20080410
  Receipt Date: 20080403
  Transmission Date: 20081010
  Serious: Yes (Other)
  Sender: FDA-Public Use
  Company Number: JP-MERCK-0804USA01189

PATIENT
  Age: 63 Year
  Sex: Female

DRUGS (2)
  1. PEPCID RPD [Suspect]
     Route: 048
     Dates: start: 20070401, end: 20070401
  2. [THERAPY UNSPECIFIED] [Suspect]
     Route: 065

REACTIONS (1)
  - STEVENS-JOHNSON SYNDROME [None]
